FAERS Safety Report 18986817 (Version 1)
Quarter: 2021Q1

REPORT INFORMATION
  Report Type: Spontaneous
  Country: US (occurrence: US)
  Receive Date: 20210309
  Receipt Date: 20210309
  Transmission Date: 20210420
  Serious: No
  Sender: FDA-Public Use
  Company Number: US-SA-2021SA076460

PATIENT
  Age: 16 Year
  Sex: Male

DRUGS (11)
  1. PROBIOTIC [BIFIDOBACTERIUM LACTIS] [Concomitant]
     Active Substance: BIFIDOBACTERIUM ANIMALIS LACTIS
     Dosage: UNK
  2. PROAIR HFA [Concomitant]
     Active Substance: ALBUTEROL SULFATE
     Dosage: UNK
  3. EPINEPHRINE. [Concomitant]
     Active Substance: EPINEPHRINE
  4. ZINC. [Concomitant]
     Active Substance: ZINC
  5. TACROLIMUS. [Concomitant]
     Active Substance: TACROLIMUS
  6. MULTIVITAMINS [VITAMINS NOS] [Concomitant]
     Active Substance: VITAMINS
  7. DUPIXENT [Suspect]
     Active Substance: DUPILUMAB
     Indication: ASTHMA
     Route: 058
     Dates: start: 20201029
  8. ALLEGRA ALLERGY [Concomitant]
     Active Substance: FEXOFENADINE HYDROCHLORIDE
     Dosage: UNK
  9. PREDNISONE. [Concomitant]
     Active Substance: PREDNISONE
     Dosage: UNK
  10. VITAMIN C [Concomitant]
     Active Substance: ASCORBIC ACID
  11. DUPIXENT [Suspect]
     Active Substance: DUPILUMAB
     Indication: DERMATITIS ATOPIC
     Dosage: UNK, Q3W

REACTIONS (5)
  - Eczema [Unknown]
  - Therapeutic response decreased [Unknown]
  - Pruritus [Recovering/Resolving]
  - Product use issue [Unknown]
  - Burning sensation [Recovering/Resolving]
